FAERS Safety Report 7749721-3 (Version None)
Quarter: 2011Q3

REPORT INFORMATION
  Report Type: 
  Country: None (occurrence: None)
  Receive Date: 20110914
  Receipt Date: 20110905
  Transmission Date: 20111222
  Serious: Yes (Other)
  Sender: FDA-Public Use
  Company Number: GB-ROCHE-800989

PATIENT
  Sex: Female
  Weight: 66.2 kg

DRUGS (7)
  1. ACETAMINOPHEN [Concomitant]
     Dates: start: 20110216
  2. CETIRIZINE HCL [Concomitant]
     Dates: start: 20110214
  3. VEMURAFENIB [Suspect]
     Indication: MALIGNANT MELANOMA
     Dosage: LAST DOSE PRIOR TO SAE ON 04 SEP 2011.
     Route: 048
     Dates: start: 20110207
  4. FERROUS SULFATE TAB [Concomitant]
     Dates: start: 20110817
  5. FUROSEMIDE [Concomitant]
     Dates: start: 20110524
  6. LEVOTHYROXINE SODIUM [Concomitant]
     Dates: start: 20040101
  7. SENNA [Concomitant]
     Dates: start: 20110524

REACTIONS (1)
  - ACTINIC KERATOSIS [None]
